FAERS Safety Report 24176008 (Version 1)
Quarter: 2024Q3

REPORT INFORMATION
  Report Type: Spontaneous
  Country: HU (occurrence: GB)
  Receive Date: 20240806
  Receipt Date: 20240806
  Transmission Date: 20241017
  Serious: Yes (Disabling, Other)
  Sender: SUNOVION
  Company Number: None

PATIENT

DRUGS (2)
  1. ESTRADIOL\NORETHINDRONE ACETATE\RELUGOLIX [Suspect]
     Active Substance: ESTRADIOL\NORETHINDRONE ACETATE\RELUGOLIX
     Indication: Uterine leiomyoma
     Dosage: 40MG + ESTRADIOL 1MG + NORETHISTERONE 0.5MG (1 TABLET) ONCE A DAY
     Route: 065
     Dates: start: 20240304, end: 20240323
  2. ADALIMUMAB [Concomitant]
     Active Substance: ADALIMUMAB
     Indication: Uveitis
     Dosage: UNK
     Route: 065

REACTIONS (10)
  - Mood swings [Recovered/Resolved]
  - Acne [Recovered/Resolved]
  - Dysmenorrhoea [Recovered/Resolved]
  - Insomnia [Recovering/Resolving]
  - Dry skin [Recovered/Resolved]
  - Menstrual clots [Recovered/Resolved]
  - Headache [Recovered/Resolved]
  - Hot flush [Recovered/Resolved]
  - Anaemia [Not Recovered/Not Resolved]
  - Heavy menstrual bleeding [Recovered/Resolved with Sequelae]

NARRATIVE: CASE EVENT DATE: 20240301
